FAERS Safety Report 8104187-9 (Version None)
Quarter: 2012Q1

REPORT INFORMATION
  Report Type: 
  Country: None (occurrence: None)
  Receive Date: 20120130
  Receipt Date: 20120120
  Transmission Date: 20120608
  Serious: Yes (Hospitalization)
  Sender: FDA-Public Use
  Company Number: US-ACTELION-A-NJ2010-36787

PATIENT

DRUGS (4)
  1. TRACLEER [Suspect]
     Indication: PULMONARY ARTERIAL HYPERTENSION
     Dosage: UNK
     Route: 048
     Dates: start: 20100223
  2. ASPIRIN [Concomitant]
  3. PREDNISONE TAB [Concomitant]
  4. WARFARIN SODIUM [Concomitant]

REACTIONS (7)
  - PALPITATIONS [None]
  - NEPHROLITHIASIS [None]
  - BACK PAIN [None]
  - ABDOMINAL PAIN [None]
  - LIVER FUNCTION TEST ABNORMAL [None]
  - DYSPNOEA [None]
  - FATIGUE [None]
